FAERS Safety Report 8313487-9 (Version None)
Quarter: 2012Q2

REPORT INFORMATION
  Report Type: 
  Country: None (occurrence: None)
  Receive Date: 20120426
  Receipt Date: 20120423
  Transmission Date: 20120825
  Serious: Yes (Other)
  Sender: FDA-Public Use
  Company Number: US-PFIZER INC-IDR-00496

PATIENT
  Sex: Female

DRUGS (1)
  1. PROPRANOLOL HCL [Suspect]
     Dosage: 160 MG, UNK
     Route: 048
     Dates: start: 20100101

REACTIONS (1)
  - CARDIAC FLUTTER [None]
